FAERS Safety Report 6932423-0 (Version None)
Quarter: 2010Q3

REPORT INFORMATION
  Report Type: 
  Country: None (occurrence: None)
  Receive Date: 20100819
  Receipt Date: 20100811
  Transmission Date: 20110219
  Serious: Yes (Other)
  Sender: FDA-Public Use
  Company Number: US-PFIZER INC-2010101341

PATIENT
  Age: 77 Year
  Sex: Female
  Weight: 58.957 kg

DRUGS (6)
  1. CAMPTOSAR [Suspect]
     Indication: PANCREATIC CARCINOMA METASTATIC
     Dosage: UNK
     Dates: start: 20100804, end: 20100804
  2. FLUOROURACIL [Suspect]
     Indication: PANCREATIC CARCINOMA METASTATIC
     Dosage: UNK
     Dates: start: 20090101, end: 20100804
  3. OXALIPLATIN [Suspect]
     Indication: PANCREATIC CARCINOMA METASTATIC
     Dosage: UNK
     Dates: start: 20090101, end: 20100101
  4. GEMZAR [Suspect]
     Indication: PANCREATIC CARCINOMA METASTATIC
     Dosage: UNK
     Dates: start: 20090101, end: 20100804
  5. LEUCOVORIN CALCIUM [Suspect]
     Indication: PANCREATIC CARCINOMA METASTATIC
     Dosage: UNK
     Dates: start: 20090101, end: 20100804
  6. SYNTHROID [Concomitant]
     Indication: HYPOTHYROIDISM
     Dosage: 100 MCG  OR 175 MCG
     Route: 048

REACTIONS (2)
  - AUTOIMMUNE THROMBOCYTOPENIA [None]
  - CONTUSION [None]
